FAERS Safety Report 10057584 (Version 1)
Quarter: 2014Q2

REPORT INFORMATION
  Report Type: Spontaneous
  Country: US (occurrence: US)
  Receive Date: 20140404
  Receipt Date: 20140404
  Transmission Date: 20141212
  Serious: No
  Sender: FDA-Public Use
  Company Number: US-009507513-1404USA002193

PATIENT
  Age: 33 Year
  Sex: Female

DRUGS (3)
  1. PEGINTRON [Suspect]
     Indication: HEPATITIS C
     Dosage: 0.5 ML, ONCE A WEEK, REDIPEN
     Dates: start: 201403
  2. REBETOL [Suspect]
     Dosage: UNK
  3. SOVALDI [Concomitant]
     Dosage: UNK

REACTIONS (6)
  - Injection site urticaria [Unknown]
  - Pain [Unknown]
  - Pyrexia [Unknown]
  - Influenza like illness [Unknown]
  - Decreased appetite [Unknown]
  - Nausea [Recovering/Resolving]
